FAERS Safety Report 9163362 (Version 3)
Quarter: 2013Q2

REPORT INFORMATION
  Report Type: Spontaneous
  Country: NO (occurrence: NO)
  Receive Date: 20130314
  Receipt Date: 20130401
  Transmission Date: 20140414
  Serious: Yes (Life-Threatening, Hospitalization)
  Sender: FDA-Public Use
  Company Number: NO-ROCHE-1191279

PATIENT
  Age: 43 Year
  Sex: Male

DRUGS (10)
  1. ROACTEMRA [Suspect]
     Indication: JUVENILE IDIOPATHIC ARTHRITIS
     Route: 041
     Dates: start: 20100625, end: 201201
  2. ROACTEMRA [Suspect]
     Route: 065
     Dates: start: 20120214
  3. FOSAMAX [Concomitant]
     Indication: OSTEOPOROSIS
     Route: 048
  4. CALCIGRAN FORTE [Concomitant]
     Indication: OSTEOPOROSIS
     Dosage: 1G/ 800IU
     Route: 065
  5. CALCIGRAN FORTE [Concomitant]
     Route: 048
  6. VERAKARD [Concomitant]
     Indication: HYPERTENSION
     Route: 048
  7. OXYCONTIN [Concomitant]
     Dosage: 200MG X2
     Route: 065
     Dates: start: 20120418
  8. PARACET [Concomitant]
     Dosage: 1G X4
     Route: 065
  9. PREDNISOLONE [Concomitant]
     Indication: JUVENILE IDIOPATHIC ARTHRITIS
     Route: 048
  10. COAPROVEL [Concomitant]
     Indication: HYPERTENSION
     Route: 048

REACTIONS (4)
  - Gas gangrene [Recovered/Resolved with Sequelae]
  - Anal abscess [Recovered/Resolved]
  - Gangrene [Recovered/Resolved]
  - Sepsis [Recovered/Resolved]
